FAERS Safety Report 5624962-X (Version None)
Quarter: 2008Q1

REPORT INFORMATION
  Report Type: 
  Country: None (occurrence: None)
  Receive Date: 20080213
  Receipt Date: 20080201
  Transmission Date: 20080703
  Serious: Yes (Other)
  Sender: FDA-Public Use
  Company Number: FR-PFIZER INC-2008005072

PATIENT
  Age: 65 Year
  Sex: Male

DRUGS (1)
  1. CHANTIX [Suspect]

REACTIONS (3)
  - BLOOD GLUCOSE ABNORMAL [None]
  - HYPERTENSION [None]
  - VERTIGO [None]
